FAERS Safety Report 6969872-0 (Version None)
Quarter: 2010Q3

REPORT INFORMATION
  Report Type: 
  Country: None (occurrence: None)
  Receive Date: 20100903
  Receipt Date: 20100830
  Transmission Date: 20110219
  Serious: Yes (Hospitalization, Other)
  Sender: FDA-Public Use
  Company Number: 20109077

PATIENT
  Sex: Male

DRUGS (1)
  1. LIORESAL [Suspect]
     Indication: MUSCLE SPASTICITY
     Dosage: 446.5 MCG, DAILY, INTRATHECAL
     Route: 037

REACTIONS (7)
  - CELLULITIS [None]
  - HAEMORRHAGE [None]
  - IMPLANT SITE DISCHARGE [None]
  - IMPLANT SITE ERYTHEMA [None]
  - IMPLANT SITE INFLAMMATION [None]
  - INFECTION [None]
  - THROMBOSIS [None]
